FAERS Safety Report 10200129 (Version 1)
Quarter: 2014Q2

REPORT INFORMATION
  Report Type: Spontaneous
  Country: US (occurrence: US)
  Receive Date: 20140527
  Receipt Date: 20140527
  Transmission Date: 20141212
  Serious: Yes (Other)
  Sender: FDA-Public Use
  Company Number: US-009507513-1405USA013673

PATIENT
  Sex: Female

DRUGS (2)
  1. FOSAMAX [Suspect]
     Dosage: UNK
     Route: 048
     Dates: start: 200303, end: 200801
  2. BONIVA [Suspect]
     Dosage: UNK
     Dates: start: 20090720, end: 20110620

REACTIONS (1)
  - Femur fracture [Unknown]
